FAERS Safety Report 21523738 (Version 4)
Quarter: 2022Q4

REPORT INFORMATION
  Report Type: Spontaneous
  Country: US (occurrence: US)
  Receive Date: 20221029
  Receipt Date: 20221119
  Transmission Date: 20230113
  Serious: No
  Sender: FDA-Public Use
  Company Number: US-UNITED THERAPEUTICS-UNT-2022-023131

PATIENT
  Sex: Female
  Weight: 53.061 kg

DRUGS (36)
  1. REMODULIN [Suspect]
     Active Substance: TREPROSTINIL
     Indication: Pulmonary arterial hypertension
     Dosage: UNK, CONTINUING
     Route: 058
     Dates: start: 20220929
  2. REMODULIN [Suspect]
     Active Substance: TREPROSTINIL
     Dosage: 0.010 ?G/KG (PRE-FILLED WITH 3 ML PER CASSETTE; RATE OF 32 MCL/HOUR), CONTINUING
     Route: 058
  3. REMODULIN [Suspect]
     Active Substance: TREPROSTINIL
     Indication: Pulmonary arterial hypertension
     Dosage: 0.0125 ?G/KG (PRE-FILLED WITH 3 ML PER CASSETTE AT RATE OF 32 MCL/HOUR), CONTINUING
     Route: 058
     Dates: start: 2022
  4. REMODULIN [Suspect]
     Active Substance: TREPROSTINIL
     Dosage: 0.020 ?G/KG (PHARMACY FILLED WITH 2.4 ML PER CASSETTE, AT AN PUMP RATE 25MCL PER HOUR), CONTINUING
     Route: 058
     Dates: start: 2022
  5. TYVASO [Suspect]
     Active Substance: TREPROSTINIL
     Indication: Pulmonary arterial hypertension
     Dosage: UNK
     Dates: end: 20220929
  6. OPSUMIT [Concomitant]
     Active Substance: MACITENTAN
     Indication: Pulmonary arterial hypertension
     Dosage: 10 MG, QD
     Route: 048
     Dates: start: 20220304
  7. REVATIO [Concomitant]
     Active Substance: SILDENAFIL CITRATE
     Indication: Pulmonary arterial hypertension
     Dosage: 40 MG, TID
     Route: 048
     Dates: start: 20210908
  8. TYLENOL [Concomitant]
     Active Substance: ACETAMINOPHEN
     Indication: Pain
     Dosage: 650 MG, Q6H (TWO TABLETS BY MOUTH EVERY 6 HOURS AS NEEDED FOR UP TO 30 DOSES)
     Route: 048
  9. VITAMIN C [Concomitant]
     Active Substance: ASCORBIC ACID
     Indication: Product used for unknown indication
     Dosage: 1 TABLET DAILY
     Route: 048
  10. ASPIRIN [Concomitant]
     Active Substance: ASPIRIN
     Indication: Product used for unknown indication
     Dosage: 81 MG, QD
     Route: 048
  11. LIPITOR [Concomitant]
     Active Substance: ATORVASTATIN CALCIUM
     Indication: Product used for unknown indication
     Dosage: 10 MG, QD
     Route: 048
     Dates: start: 20211129
  12. BUMEX [Concomitant]
     Active Substance: BUMETANIDE
     Indication: Pulmonary oedema
     Dosage: 3 MG, BID (THREE TABLETS BY MOUTH TWICE DAILY FOR 90 DAYS)
     Route: 048
     Dates: start: 20220929
  13. OSCAL [Concomitant]
     Active Substance: CALCIUM CARBONATE
     Indication: Product used for unknown indication
     Dosage: 1250 MG, QD
     Route: 048
  14. ZYRTEC [Concomitant]
     Active Substance: CETIRIZINE HYDROCHLORIDE
     Indication: Nasal inflammation
     Dosage: 10 MG, BID (FOR 30 DOSES)
     Route: 048
     Dates: start: 20220929, end: 20221014
  15. ZYRTEC [Concomitant]
     Active Substance: CETIRIZINE HYDROCHLORIDE
     Indication: Rhinorrhoea
  16. VITAMIN D3 [Concomitant]
     Active Substance: CHOLECALCIFEROL
     Indication: Product used for unknown indication
     Dosage: 400 IU, QD
     Route: 048
  17. VOLTAREN [Concomitant]
     Active Substance: DICLOFENAC SODIUM
     Indication: Product used for unknown indication
     Dosage: 2 GRAM, QID (FOR 38 DAYS TO AFFECTED AREA)
     Route: 061
     Dates: start: 20220929
  18. PEPCID [Concomitant]
     Active Substance: FAMOTIDINE
     Indication: Infusion site erythema
     Dosage: 20 MG, QD (AT BEDTIME)
     Route: 048
     Dates: start: 20220929
  19. PEPCID [Concomitant]
     Active Substance: FAMOTIDINE
     Indication: Infusion site pruritus
  20. FLONASE [Concomitant]
     Active Substance: FLUTICASONE PROPIONATE
     Indication: Infusion site pain
     Dosage: 50 MCG/ACTUATION NASAL SPRAY (INSTILL TWO SPRAYS IN EACH NOSTRIL THREE TIMES DAILY AS NEEDED)
     Route: 045
     Dates: start: 20220929
  21. FLONASE [Concomitant]
     Active Substance: FLUTICASONE PROPIONATE
     Indication: Infusion site irritation
  22. FLONASE [Concomitant]
     Active Substance: FLUTICASONE PROPIONATE
     Indication: Infusion site pruritus
  23. FLONASE [Concomitant]
     Active Substance: FLUTICASONE PROPIONATE
     Indication: Infusion site erythema
  24. HYPROMELLOSES [Concomitant]
     Active Substance: HYPROMELLOSES
     Indication: Product used for unknown indication
     Dosage: PLACE 1 DROP INTO OR AROUND EYE(S) DAILY AS NEEDED
     Route: 047
  25. IMODIUM [Concomitant]
     Active Substance: LOPERAMIDE HYDROCHLORIDE
     Indication: Diarrhoea
     Dosage: TAKE 2 MG BY MOUTH AS NEEDED
     Route: 048
  26. MAGOX [Concomitant]
     Indication: Product used for unknown indication
     Dosage: 400 MG, QD
     Route: 048
  27. MELATONIN [Concomitant]
     Active Substance: MELATONIN
     Indication: Product used for unknown indication
     Dosage: 5 MG, QD (1-2 TABLETS ONCE DAILY AT BEDTIME)
     Route: 048
  28. VITAMINS [Concomitant]
     Active Substance: VITAMINS
     Indication: Product used for unknown indication
     Dosage: TAKE 2 CAPSULES DAILY
     Route: 048
  29. CELLCEPT [Concomitant]
     Active Substance: MYCOPHENOLATE MOFETIL
     Indication: Product used for unknown indication
     Dosage: 500 MG, BID (ON AN EMPTY STOMACH)
     Route: 048
     Dates: start: 20220510
  30. PRILOSEC [Concomitant]
     Active Substance: OMEPRAZOLE MAGNESIUM
     Indication: Product used for unknown indication
     Dosage: 20 MG, Q12H
     Route: 048
     Dates: start: 20180508
  31. ZOFRAN [Concomitant]
     Active Substance: ONDANSETRON HYDROCHLORIDE
     Indication: Nausea
     Dosage: 4 MG, Q6H (PLACE ON TONGUE TO DISSOLVE)
     Route: 048
     Dates: start: 20220929
  32. LECITHIN\POLOXAMER 407 [Concomitant]
     Active Substance: LECITHIN\POLOXAMER 407
     Indication: Infusion site pain
     Dosage: 0.2 ML, QID (AS NEEDED)
     Route: 061
     Dates: start: 20220929
  33. KLOR-CON M20 [Concomitant]
     Active Substance: POTASSIUM CHLORIDE
     Indication: Blood potassium decreased
     Dosage: 20 MEQ (TAKE TWO TABLETS BY MOUTH AS NEEDED)
     Route: 048
     Dates: start: 20220929
  34. ALDACTONE [Concomitant]
     Active Substance: SPIRONOLACTONE
     Indication: Product used for unknown indication
     Dosage: 50 MG, BID (WITH FOOD)
     Route: 048
     Dates: start: 20210907
  35. ALDACTONE [Concomitant]
     Active Substance: SPIRONOLACTONE
     Indication: Product used for unknown indication
     Dosage: 25 MG, BID (TAKE WITH 50 MG TABLET TO EQUAL 75 MG TWICE DAILY)
     Route: 048
     Dates: start: 20220715
  36. DESYREL [Concomitant]
     Active Substance: TRAZODONE HYDROCHLORIDE
     Indication: Insomnia
     Dosage: 50 MG, QD (AT BEDTIME AS NEEDED FOR UP TO 15 DOSES)
     Route: 048
     Dates: start: 20220929

REACTIONS (15)
  - Headache [Recovering/Resolving]
  - Pain in extremity [Not Recovered/Not Resolved]
  - Pain in jaw [Recovering/Resolving]
  - Infusion site pain [Recovering/Resolving]
  - Infusion site erythema [Recovering/Resolving]
  - Infusion site warmth [Unknown]
  - Hypotension [Unknown]
  - Peripheral swelling [Unknown]
  - Weight increased [Unknown]
  - Chills [Unknown]
  - Fatigue [Unknown]
  - Pyrexia [Unknown]
  - Infusion site irritation [Unknown]
  - Infusion site swelling [Unknown]
  - Oedema peripheral [Unknown]

NARRATIVE: CASE EVENT DATE: 20220101
